FAERS Safety Report 5534449-0 (Version None)
Quarter: 2007Q4

REPORT INFORMATION
  Report Type: 
  Country: None (occurrence: None)
  Receive Date: 20071205
  Receipt Date: 20071203
  Transmission Date: 20080405
  Serious: Yes (Other)
  Sender: FDA-Public Use
  Company Number: B0495611A

PATIENT
  Age: 30 Year
  Sex: Male

DRUGS (3)
  1. LAMIVUDINE [Suspect]
     Indication: HIV INFECTION
     Dosage: 150MG PER DAY
     Route: 065
  2. ZIDOVUDINE [Suspect]
     Indication: HIV INFECTION
     Dosage: 300MG PER DAY
     Route: 065
  3. EFAVIRENZ [Suspect]
     Indication: HIV INFECTION
     Dosage: 600MG PER DAY
     Route: 065

REACTIONS (7)
  - GRANULOMA [None]
  - HYPERKERATOSIS [None]
  - IMMUNE RECONSTITUTION SYNDROME [None]
  - MADAROSIS [None]
  - RASH [None]
  - SKIN LESION [None]
  - TUBERCULOID LEPROSY [None]
